FAERS Safety Report 14431650 (Version 3)
Quarter: 2018Q1

REPORT INFORMATION
  Report Type: Spontaneous
  Country: IT (occurrence: IT)
  Receive Date: 20180124
  Receipt Date: 20180207
  Transmission Date: 20180509
  Serious: Yes (Other)
  Sender: FDA-Public Use
  Company Number: IT-009507513-1801ITA008143

PATIENT
  Age: 58 Year
  Sex: Male

DRUGS (11)
  1. SEACOR [Concomitant]
     Active Substance: OMEGA-3 FATTY ACIDS
  2. TRIATEC HCT [Concomitant]
     Active Substance: HYDROCHLOROTHIAZIDE\RAMIPRIL
  3. VENITRIN [Concomitant]
     Active Substance: NITROGLYCERIN
  4. ALFUZOSIN HYDROCHLORIDE. [Concomitant]
     Active Substance: ALFUZOSIN HYDROCHLORIDE
  5. VYTORIN [Suspect]
     Active Substance: EZETIMIBE\SIMVASTATIN
     Indication: HYPERCHOLESTEROLAEMIA
     Dosage: 10 MG, QD
     Route: 048
     Dates: start: 20060101, end: 20091111
  6. GLUCOPHAGE [Concomitant]
     Active Substance: METFORMIN HYDROCHLORIDE
  7. CARDIOASPIRIN [Concomitant]
     Active Substance: ASPIRIN
  8. EZETROL 10 MG COMPRESSE [Concomitant]
     Active Substance: EZETIMIBE
  9. PANTORC [Concomitant]
     Active Substance: PANTOPRAZOLE SODIUM
  10. PLAVIX [Concomitant]
     Active Substance: CLOPIDOGREL BISULFATE
  11. EZETROL [Concomitant]
     Active Substance: EZETIMIBE

REACTIONS (1)
  - Enthesopathy [Recovering/Resolving]

NARRATIVE: CASE EVENT DATE: 20120610
